FAERS Safety Report 7350086-X (Version None)
Quarter: 2011Q1

REPORT INFORMATION
  Report Type: 
  Country: None (occurrence: None)
  Receive Date: 20110314
  Receipt Date: 20110308
  Transmission Date: 20110831
  Serious: Yes (Other)
  Sender: FDA-Public Use
  Company Number: A0883083A

PATIENT
  Age: 32 Year
  Sex: Male

DRUGS (2)
  1. PREDNISONE TAB [Concomitant]
  2. PROMACTA [Suspect]
     Indication: IDIOPATHIC THROMBOCYTOPENIC PURPURA
     Dosage: 75MG PER DAY
     Route: 048
     Dates: start: 20100201, end: 20100722

REACTIONS (2)
  - DRUG INEFFECTIVE [None]
  - BONE MARROW RETICULIN FIBROSIS [None]
